FAERS Safety Report 7319120-7 (Version None)
Quarter: 2011Q1

REPORT INFORMATION
  Report Type: 
  Country: None (occurrence: None)
  Receive Date: 20110228
  Receipt Date: 20110228
  Transmission Date: 20110831
  Serious: Yes (Death, Hospitalization)
  Sender: FDA-Public Use
  Company Number: DE-ELI_LILLY_AND_COMPANY-DE201006005666

PATIENT
  Sex: Male
  Weight: 68.7 kg

DRUGS (12)
  1. PEMETREXED [Suspect]
     Dosage: 900 MG, OTHER
     Route: 042
     Dates: start: 20100614
  2. ACC                                /00082801/ [Concomitant]
     Indication: COUGH
     Dosage: 600 D/F, UNK
     Dates: start: 20100511
  3. CISPLATIN [Suspect]
     Dosage: 130 MG, ONCE EVERY 3 WEEKS
     Route: 042
     Dates: start: 20100521, end: 20100521
  4. VOLTAREN                                /SCH/ [Concomitant]
     Indication: PAIN
     Dosage: 75 MG, UNK
     Dates: start: 20100511
  5. NECITUMUMAB (11F8) (LY3012211) [Suspect]
     Dosage: 800 MG, TWICE EVERY 3 WEEKS
     Route: 042
     Dates: start: 20100521, end: 20100527
  6. CISPLATIN [Suspect]
     Dosage: 130 MG, OTHER
     Route: 042
     Dates: start: 20100614
  7. NEXIUM [Concomitant]
     Indication: PROPHYLAXIS
     Dosage: 40 MG, UNK
     Dates: start: 20100421
  8. FOLSAN [Concomitant]
     Dosage: 0.4 D/F, UNK
     Dates: start: 20100511
  9. CYANOCOBALAMIN [Concomitant]
     Dates: start: 20100414
  10. PEMETREXED [Suspect]
     Dosage: 900 MG, ONCE EVERY 3 WEEKS
     Route: 042
     Dates: start: 20100521, end: 20100521
  11. NECITUMUMAB (11F8) (LY3012211) [Suspect]
     Dosage: 800 MG, OTHER
     Route: 042
     Dates: start: 20100614
  12. DECORTIN H [Concomitant]
     Indication: PROPHYLAXIS
     Dates: start: 20100424

REACTIONS (7)
  - INTRA-ABDOMINAL HAEMORRHAGE [None]
  - INTESTINAL INFARCTION [None]
  - INTESTINAL GANGRENE [None]
  - SEPSIS [None]
  - CHOLECYSTITIS INFECTIVE [None]
  - SPLENIC INFARCTION [None]
  - DEHYDRATION [None]
